FAERS Safety Report 25738863 (Version 1)
Quarter: 2025Q3

REPORT INFORMATION
  Report Type: Spontaneous
  Country: EU (occurrence: EU)
  Receive Date: 20250829
  Receipt Date: 20250829
  Transmission Date: 20251020
  Serious: Yes (Other)
  Sender: ALEXION PHARMACEUTICALS
  Company Number: EU-AstraZeneca-CH-00933349AM

PATIENT
  Age: 74 Year
  Sex: Female

DRUGS (1)
  1. DAPAGLIFLOZIN [Suspect]
     Active Substance: DAPAGLIFLOZIN
     Route: 065

REACTIONS (7)
  - Wrong technique in product usage process [Unknown]
  - Drug intolerance [Unknown]
  - Hypotension [Unknown]
  - Arrhythmia [Unknown]
  - Dizziness [Unknown]
  - Joint swelling [Unknown]
  - Heart rate increased [Unknown]
